FAERS Safety Report 7200708-9 (Version None)
Quarter: 2010Q4

REPORT INFORMATION
  Report Type: 
  Country: None (occurrence: None)
  Receive Date: 20101228
  Receipt Date: 20101215
  Transmission Date: 20110411
  Serious: Yes (Death)
  Sender: FDA-Public Use
  Company Number: US-MYLANLABS-2010S1023332

PATIENT
  Sex: Female

DRUGS (7)
  1. PREDNISONE [Suspect]
     Indication: IMMUNOSUPPRESSION
     Route: 065
  2. CYCLOSPORINE [Suspect]
     Indication: IMMUNOSUPPRESSION
     Route: 065
  3. AZATHIOPRINE [Suspect]
     Indication: IMMUNOSUPPRESSION
     Route: 065
  4. SIROLIMUS [Suspect]
     Indication: IMMUNOSUPPRESSION
     Route: 065
  5. MYCOPHENOLATE MOFETIL [Suspect]
     Indication: IMMUNOSUPPRESSION
     Route: 065
  6. VORICONAZOLE [Suspect]
     Indication: ASPERGILLOSIS
     Route: 048
     Dates: start: 20040101
  7. VORICONAZOLE [Suspect]
     Route: 048
     Dates: start: 20040101

REACTIONS (2)
  - PHOTOSENSITIVITY REACTION [None]
  - SQUAMOUS CELL CARCINOMA [None]
